FAERS Safety Report 18584632 (Version 2)
Quarter: 2020Q4

REPORT INFORMATION
  Report Type: Spontaneous
  Country: BE (occurrence: BE)
  Receive Date: 20201207
  Receipt Date: 20201231
  Transmission Date: 20210114
  Serious: Yes (Other)
  Sender: FDA-Public Use
  Company Number: BE-ROCHE-2722957

PATIENT
  Age: 46 Year
  Sex: Female
  Weight: 69.8 kg

DRUGS (4)
  1. PERJETA [Suspect]
     Active Substance: PERTUZUMAB
     Indication: INVASIVE DUCTAL BREAST CARCINOMA
     Route: 042
     Dates: start: 20201019, end: 20201109
  2. TAXOL [Concomitant]
     Active Substance: PACLITAXEL
  3. DUROGESIC [Concomitant]
     Active Substance: FENTANYL
  4. HERCEPTIN [Concomitant]
     Active Substance: TRASTUZUMAB
     Route: 058

REACTIONS (7)
  - Urinary incontinence [Recovered/Resolved]
  - Feeling hot [Recovered/Resolved]
  - Rash [Recovered/Resolved]
  - Syncope [Recovered/Resolved]
  - Malaise [Recovered/Resolved]
  - Hypotension [Recovered/Resolved]
  - Anaphylactic shock [Recovered/Resolved]

NARRATIVE: CASE EVENT DATE: 20201109
